FAERS Safety Report 14505830 (Version 1)
Quarter: 2018Q1

REPORT INFORMATION
  Report Type: Spontaneous
  Country: US (occurrence: US)
  Receive Date: 20180208
  Receipt Date: 20180208
  Transmission Date: 20180509
  Serious: Yes (Hospitalization, Other)
  Sender: FDA-Public Use
  Company Number: US-WEST-WARD PHARMACEUTICALS CORP.-US-H14001-18-00805

PATIENT
  Age: 36 Year
  Sex: Male

DRUGS (1)
  1. FENTANYL. [Suspect]
     Active Substance: FENTANYL
     Indication: PRODUCT USED FOR UNKNOWN INDICATION
     Route: 042

REACTIONS (10)
  - Unresponsive to stimuli [Recovered/Resolved]
  - Hypopnoea [Recovered/Resolved]
  - Cyanosis [Unknown]
  - Mental status changes [Unknown]
  - Drug withdrawal syndrome [Unknown]
  - Non-cardiogenic pulmonary oedema [Recovered/Resolved]
  - Hypoxia [Recovered/Resolved]
  - Miosis [Recovered/Resolved]
  - Coma [Recovered/Resolved]
  - Accidental overdose [Recovered/Resolved]
